FAERS Safety Report 9095671 (Version 1)
Quarter: 2013Q1

REPORT INFORMATION
  Report Type: Spontaneous
  Country: DE (occurrence: DE)
  Receive Date: 20130131
  Receipt Date: 20130131
  Transmission Date: 20140127
  Serious: Yes (Other)
  Sender: FDA-Public Use
  Company Number: DE-ROXANE LABORATORIES, INC.-2013-RO-00172RO

PATIENT
  Age: 51 Year
  Sex: Male

DRUGS (8)
  1. CLOPIDOGREL [Suspect]
     Indication: ACUTE CORONARY SYNDROME
  2. CLOPIDOGREL [Suspect]
     Indication: ACUTE MYOCARDIAL INFARCTION
     Dosage: 75 MG
  3. ASPIRIN [Suspect]
     Indication: ACUTE CORONARY SYNDROME
     Dosage: 100 MG
  4. ASPIRIN [Suspect]
     Indication: ACUTE MYOCARDIAL INFARCTION
  5. ENOXAPARIN SODIUM [Suspect]
     Route: 058
  6. BISOPROLOL [Suspect]
  7. IBUPROFEN [Suspect]
     Indication: PAIN
  8. OXYCODONE [Suspect]
     Indication: PAIN

REACTIONS (1)
  - Drug effect decreased [Unknown]
